FAERS Safety Report 7795020-3 (Version None)
Quarter: 2011Q4

REPORT INFORMATION
  Report Type: 
  Country: None (occurrence: None)
  Receive Date: 20111004
  Receipt Date: 20110923
  Transmission Date: 20120403
  Serious: Yes (Death, Life-Threatening, Hospitalization, Other)
  Sender: FDA-Public Use
  Company Number: GB-TEVA-285449ISR

PATIENT
  Sex: Female
  Weight: 18 kg

DRUGS (37)
  1. METHOTREXATE [Suspect]
     Dosage: 7.4 MILLIGRAM;
     Route: 040
     Dates: start: 20101124, end: 20101124
  2. GANCICLOVIR [Concomitant]
  3. RIBAVIRIN [Concomitant]
  4. VALGANCICLOVIR [Concomitant]
  5. OSELTAMIVIR [Concomitant]
  6. METHOTREXATE [Suspect]
     Indication: GRAFT VERSUS HOST DISEASE
     Dosage: 7.4 MILLIGRAM;
     Route: 040
     Dates: start: 20101121, end: 20101121
  7. CYCLOPHOSPHAMIDE [Suspect]
     Indication: BONE MARROW TRANSPLANT
     Dosage: 900 MILLIGRAM;
     Route: 042
     Dates: start: 20101112, end: 20101115
  8. ALEMTUZUMAB [Concomitant]
  9. MESNA [Concomitant]
  10. BASILIXIMAB [Concomitant]
  11. CYCLOSPORINE [Concomitant]
     Indication: GRAFT VERSUS HOST DISEASE
  12. FOSCARNET SODIUM [Concomitant]
  13. RITUXIMAB [Concomitant]
  14. ITRACONAZOLE [Concomitant]
  15. AMPHOTERICIN B [Concomitant]
  16. TACROLIMUS [Concomitant]
  17. POSACONAZOLE [Concomitant]
  18. ALLOPURINOL [Concomitant]
  19. ACYCLOVIR [Concomitant]
  20. PENTAMIDINE [Concomitant]
  21. DAPSONE [Concomitant]
  22. PHENYTOIN [Concomitant]
  23. CEFTRIAXONE [Concomitant]
  24. THIOTEPA [Concomitant]
  25. LANSOPRAZOLE [Concomitant]
  26. VORICONAZOLE [Concomitant]
  27. ONDANSETRON [Concomitant]
  28. INTERFERON GAMMA-1B (RBE) [Concomitant]
  29. DALTEPARIN SODIUM [Concomitant]
  30. CASPOFUNGIN ACETATE [Concomitant]
  31. BUSULFAN [Suspect]
     Indication: BONE MARROW TRANSPLANT
     Dosage: 18 MILLIGRAM;
     Route: 048
     Dates: start: 20101108, end: 20101111
  32. IMMUNE GLOBULIN NOS [Concomitant]
  33. MYCOPHENOLATE MOFETIL [Concomitant]
  34. CIPROFLOXACIN [Concomitant]
  35. VITAMIN K TAB [Concomitant]
  36. INFLIXIMAB [Concomitant]
  37. CALCIUM GLUCONATE [Concomitant]

REACTIONS (18)
  - METAPNEUMOVIRUS INFECTION [None]
  - PNEUMONIA CYTOMEGALOVIRAL [None]
  - IDIOPATHIC PNEUMONIA SYNDROME [None]
  - MUCOSAL INFLAMMATION [None]
  - LUNG DISORDER [None]
  - CYTOMEGALOVIRUS INFECTION [None]
  - PERIORBITAL OEDEMA [None]
  - LEUKOENCEPHALOPATHY [None]
  - GASTROINTESTINAL TOXICITY [None]
  - WEIGHT DECREASED [None]
  - COUGH [None]
  - PAIN [None]
  - FEBRILE NEUTROPENIA [None]
  - RESPIRATORY DISTRESS [None]
  - CARDIO-RESPIRATORY ARREST [None]
  - FUNGAL INFECTION [None]
  - URINARY TRACT INFECTION [None]
  - DEEP VEIN THROMBOSIS [None]
